FAERS Safety Report 13036928 (Version 2)
Quarter: 2017Q1

REPORT INFORMATION
  Report Type: Spontaneous
  Country: CA (occurrence: CA)
  Receive Date: 20161216
  Receipt Date: 20170208
  Transmission Date: 20170428
  Serious: No
  Sender: FDA-Public Use
  Company Number: CA-PFIZER INC-2016574414

PATIENT
  Age: 20 Day
  Sex: Male
  Weight: .92 kg

DRUGS (12)
  1. PENICILLIN [Concomitant]
     Active Substance: PENICILLIN
     Indication: MENINGITIS NEONATAL
     Dosage: 100000 UNITS/KG/DAY
  2. GENTAMICIN. [Concomitant]
     Active Substance: GENTAMICIN
     Indication: STAPHYLOCOCCAL INFECTION
  3. AMPICILLIN [Concomitant]
     Active Substance: AMPICILLIN
     Indication: MENINGITIS NEONATAL
     Dosage: 300 MG/KG, DAILY
  4. VANCOMYCIN [Concomitant]
     Active Substance: VANCOMYCIN
     Indication: STAPHYLOCOCCAL INFECTION
  5. VANCOMYCIN [Concomitant]
     Active Substance: VANCOMYCIN
     Indication: MENINGITIS NEONATAL
     Dosage: 25 MG/KG, DAILY
  6. CHLORAMPHENICOL [Suspect]
     Active Substance: CHLORAMPHENICOL
     Indication: MENINGITIS NEONATAL
     Dosage: UNK (DURATION OF ANTIMICROBIAL TREATMENT:11)
  7. CHLORAMPHENICOL [Suspect]
     Active Substance: CHLORAMPHENICOL
     Dosage: 25 MG/KG, DAILY
     Route: 042
  8. DOXYCYCLINE HYCLATE. [Suspect]
     Active Substance: DOXYCYCLINE HYCLATE
     Indication: MENINGITIS NEONATAL
     Dosage: UNK (DURATION OF ANTIMICROBIAL TREATMENT:16)
  9. DOXYCYCLINE HYCLATE. [Suspect]
     Active Substance: DOXYCYCLINE HYCLATE
     Dosage: 4 MG/KG, DAILY
     Route: 042
  10. GENTAMICIN. [Concomitant]
     Active Substance: GENTAMICIN
     Indication: STAPHYLOCOCCAL INFECTION
  11. VANCOMYCIN [Concomitant]
     Active Substance: VANCOMYCIN
     Indication: STAPHYLOCOCCAL INFECTION
  12. GENTAMICIN. [Concomitant]
     Active Substance: GENTAMICIN
     Indication: MENINGITIS NEONATAL
     Dosage: 5 MG/KG, DAILY

REACTIONS (1)
  - No adverse event [Unknown]
